FAERS Safety Report 9040962 (Version 1)
Quarter: 2013Q1

REPORT INFORMATION
  Report Type: Spontaneous
  Country: US (occurrence: None)
  Receive Date: 20130123
  Receipt Date: 20130123
  Transmission Date: 20140127
  Serious: Yes (Hospitalization)
  Sender: FDA-Public Use
  Company Number: None

PATIENT
  Sex: Male
  Weight: 16.5 kg

DRUGS (4)
  1. METHOTREXATE [Suspect]
  2. ONCASPAR [Suspect]
  3. VINCRISTINE SULFATE [Concomitant]
  4. DEXAMETHASONE [Suspect]

REACTIONS (13)
  - Abdominal pain [None]
  - Vomiting [None]
  - Abdominal distension [None]
  - Gastrointestinal sounds abnormal [None]
  - Tachycardia [None]
  - Tachypnoea [None]
  - Hypotension [None]
  - Lethargy [None]
  - Caecitis [None]
  - Respiratory distress [None]
  - Erythema [None]
  - Necrotising colitis [None]
  - Enterocolitis haemorrhagic [None]
